FAERS Safety Report 8049092-1 (Version None)
Quarter: 2012Q1

REPORT INFORMATION
  Report Type: 
  Country: None (occurrence: None)
  Receive Date: 20120117
  Receipt Date: 20120111
  Transmission Date: 20120608
  Serious: Yes (Other)
  Sender: FDA-Public Use
  Company Number: JP-PFIZER INC-2012007666

PATIENT
  Age: 61 Year
  Sex: Male

DRUGS (3)
  1. VFEND [Suspect]
     Indication: SINUSITIS FUNGAL
     Route: 041
  2. AMPHOTERICIN B [Suspect]
     Indication: SINUSITIS FUNGAL
  3. MICAFUNGIN [Suspect]
     Indication: SINUSITIS FUNGAL

REACTIONS (5)
  - RENAL IMPAIRMENT [None]
  - PARALYSIS [None]
  - VISUAL IMPAIRMENT [None]
  - PANCYTOPENIA [None]
  - HEPATIC FUNCTION ABNORMAL [None]
